FAERS Safety Report 5801179-7 (Version None)
Quarter: 2008Q3

REPORT INFORMATION
  Report Type: 
  Country: None (occurrence: None)
  Receive Date: 20080702
  Receipt Date: 20080616
  Transmission Date: 20090109
  Serious: Yes (Life-Threatening, Hospitalization, Disabling)
  Sender: FDA-Public Use
  Company Number: DSA_32022_2008

PATIENT
  Sex: Male
  Weight: 113.3993 kg

DRUGS (2)
  1. ATIVAN [Suspect]
     Indication: ANXIETY
     Dosage: DF ORAL
     Route: 048
     Dates: start: 20060301, end: 20070601
  2. REQUIP [Concomitant]

REACTIONS (8)
  - AMNESIA [None]
  - ANXIETY [None]
  - CONDITION AGGRAVATED [None]
  - DRUG DEPENDENCE [None]
  - DRUG WITHDRAWAL SYNDROME [None]
  - FEELING DRUNK [None]
  - IMPAIRED DRIVING ABILITY [None]
  - PRESYNCOPE [None]
